FAERS Safety Report 13532877 (Version 2)
Quarter: 2017Q2

REPORT INFORMATION
  Report Type: Report from Study
  Country: FR (occurrence: FR)
  Receive Date: 20170510
  Receipt Date: 20170527
  Transmission Date: 20170830
  Serious: Yes (Other)
  Sender: FDA-Public Use
  Company Number: FR-BAXALTA-2017BLT003878

PATIENT
  Age: 3 Year
  Sex: Male
  Weight: 17.6 kg

DRUGS (5)
  1. VINCRISTINE [Suspect]
     Active Substance: VINCRISTINE
     Indication: ACUTE LYMPHOCYTIC LEUKAEMIA
     Dosage: 1 MG
     Route: 042
     Dates: start: 20170316, end: 20170330
  2. METHOTREXATE. [Suspect]
     Active Substance: METHOTREXATE
     Indication: ACUTE LYMPHOCYTIC LEUKAEMIA
     Dosage: 12 MG
     Route: 037
     Dates: start: 20170321, end: 20170401
  3. ONCASPAR [Suspect]
     Active Substance: PEGASPARGASE
     Dosage: 862.5 IU
     Route: 042
     Dates: start: 20170320, end: 20170320
  4. DEXAMETHASONE. [Suspect]
     Active Substance: DEXAMETHASONE
     Indication: ACUTE LYMPHOCYTIC LEUKAEMIA
     Dosage: 2.1 MG
     Route: 048
     Dates: start: 20170316
  5. ONCASPAR [Suspect]
     Active Substance: PEGASPARGASE
     Indication: ACUTE LYMPHOCYTIC LEUKAEMIA
     Dosage: 862.5 IU
     Route: 042
     Dates: start: 20170403, end: 20170403

REACTIONS (2)
  - Antithrombin III decreased [Recovered/Resolved]
  - Hypofibrinogenaemia [Recovered/Resolved]

NARRATIVE: CASE EVENT DATE: 20170406
